FAERS Safety Report 8916461 (Version 1)
Quarter: 2012Q4

REPORT INFORMATION
  Report Type: 
  Country: DE (occurrence: DE)
  Receive Date: 20121120
  Receipt Date: 20121120
  Transmission Date: 20130627
  Serious: Yes (Other)
  Sender: FDA-Public Use
  Company Number: DE-PFIZER INC-2012286355

PATIENT
  Sex: Female

DRUGS (3)
  1. ESTRING [Suspect]
     Dosage: UNK
  2. UTROGEST [Concomitant]
     Dosage: 100 mg, UNK
     Route: 067
  3. UTROGEST [Concomitant]
     Dosage: 200 mg, UNK
     Route: 067

REACTIONS (2)
  - Postmenopausal haemorrhage [Unknown]
  - Endometrial hypertrophy [Unknown]
